FAERS Safety Report 20912820 (Version 1)
Quarter: 2022Q2

REPORT INFORMATION
  Report Type: Spontaneous
  Country: US (occurrence: US)
  Receive Date: 20220603
  Receipt Date: 20220603
  Transmission Date: 20220721
  Serious: No
  Sender: FDA-Public Use
  Company Number: US-INCYTE CORPORATION-2022IN005219

PATIENT

DRUGS (1)
  1. JAKAFI [Suspect]
     Active Substance: RUXOLITINIB
     Indication: Myeloproliferative neoplasm
     Dosage: 10 MILLIGRAM, BID
     Route: 048
     Dates: start: 20220507, end: 20220510

REACTIONS (11)
  - Asthenia [Unknown]
  - Fatigue [Unknown]
  - Influenza like illness [Unknown]
  - Abdominal discomfort [Recovered/Resolved]
  - Insomnia [Unknown]
  - Arthralgia [Unknown]
  - Pain in extremity [Unknown]
  - Hypoaesthesia [Unknown]
  - Off label use [Unknown]
  - Headache [Recovering/Resolving]
  - Dizziness [Recovering/Resolving]
